FAERS Safety Report 24268503 (Version 2)
Quarter: 2024Q4

REPORT INFORMATION
  Report Type: Report from Study
  Country: US (occurrence: US)
  Receive Date: 20240830
  Receipt Date: 20241205
  Transmission Date: 20250115
  Serious: Yes (Other)
  Sender: BAUSCH AND LOMB
  Company Number: US-BAUSCH-BL-2024-012975

PATIENT
  Age: 69 Year
  Sex: Male

DRUGS (1)
  1. XIFAXAN [Suspect]
     Active Substance: RIFAXIMIN
     Indication: Product used for unknown indication
     Route: 048

REACTIONS (3)
  - Shoulder fracture [Not Recovered/Not Resolved]
  - Road traffic accident [Unknown]
  - Fall [Unknown]

NARRATIVE: CASE EVENT DATE: 20231001
